FAERS Safety Report 8551831-8 (Version None)
Quarter: 2012Q3

REPORT INFORMATION
  Report Type: 
  Country: None (occurrence: None)
  Receive Date: 20120730
  Receipt Date: 20120716
  Transmission Date: 20120928
  Serious: No
  Sender: FDA-Public Use
  Company Number: US-ENDO PHARMACEUTICALS INC.-OPCR20121644

PATIENT
  Sex: Female

DRUGS (2)
  1. OPANA ER [Suspect]
     Indication: PAIN
     Route: 048
     Dates: start: 20120101
  2. OPANA ER [Concomitant]
     Indication: PAIN
     Dosage: UNKNOWN
     Route: 048
     Dates: start: 20110101, end: 20120101

REACTIONS (6)
  - DRUG EFFECT DECREASED [None]
  - ABDOMINAL PAIN UPPER [None]
  - CONSTIPATION [None]
  - DRUG EFFECT DELAYED [None]
  - FOREIGN BODY [None]
  - DIARRHOEA [None]
